FAERS Safety Report 10009993 (Version 2)
Quarter: 2014Q1

REPORT INFORMATION
  Report Type: Spontaneous
  Country: US (occurrence: US)
  Receive Date: 20140312
  Receipt Date: 20140312
  Transmission Date: 20141002
  Serious: Yes (Hospitalization)
  Sender: FDA-Public Use
  Company Number: US-INCYTE CORPORATION-2013IN000555

PATIENT
  Age: 69 Year
  Sex: Male

DRUGS (3)
  1. JAKAFI [Suspect]
     Indication: MYELOFIBROSIS
     Dosage: 20 MG, BID
     Route: 048
     Dates: start: 20130211, end: 20130408
  2. HYDREA [Suspect]
     Dosage: UNK
     Dates: end: 20130408
  3. THALIDOMIDE [Suspect]
     Dosage: UNK
     Dates: end: 20130408

REACTIONS (3)
  - Blood count abnormal [Unknown]
  - Asthenia [Not Recovered/Not Resolved]
  - Malaise [Not Recovered/Not Resolved]
